FAERS Safety Report 12844164 (Version 1)
Quarter: 2016Q4

REPORT INFORMATION
  Report Type: Spontaneous
  Country: US (occurrence: US)
  Receive Date: 20161013
  Receipt Date: 20161013
  Transmission Date: 20170207
  Serious: No
  Sender: FDA-Public Use
  Company Number: US-ROCHE-1655288

PATIENT
  Sex: Female

DRUGS (1)
  1. ZELBORAF [Suspect]
     Active Substance: VEMURAFENIB
     Indication: NEOPLASM MALIGNANT
     Dosage: 4 TABS BID
     Route: 065
     Dates: start: 20151021

REACTIONS (5)
  - Pain [Unknown]
  - Dysgeusia [Unknown]
  - Fatigue [Unknown]
  - Bone pain [Unknown]
  - Pruritus [Unknown]
